FAERS Safety Report 8270528-5 (Version None)
Quarter: 2012Q2

REPORT INFORMATION
  Report Type: 
  Country: None (occurrence: None)
  Receive Date: 20120406
  Receipt Date: 20120324
  Transmission Date: 20120825
  Serious: Yes (Other)
  Sender: FDA-Public Use
  Company Number: 2012AP000836

PATIENT
  Age: 68 Year
  Sex: Male

DRUGS (8)
  1. OMEPRAZOLE [Suspect]
     Indication: DRUG RASH WITH EOSINOPHILIA AND SYSTEMIC SYMPTOMS
     Dosage: 20 MG;PO
     Route: 048
     Dates: start: 20100101
  2. OMEPRAZOLE [Suspect]
     Indication: DRUG RASH WITH EOSINOPHILIA AND SYSTEMIC SYMPTOMS
     Dosage: 20 MG;PO
     Route: 048
     Dates: start: 20070101
  3. OMEPRAZOLE [Suspect]
     Indication: DRUG RASH WITH EOSINOPHILIA AND SYSTEMIC SYMPTOMS
     Dosage: 20 MG;PO
     Route: 048
     Dates: start: 20090101
  4. DIAZEPAM [Suspect]
     Indication: BACK PAIN
     Dates: start: 20090101
  5. CORTICOSTEROID NOS (CORTICOSTEROID NOS) [Concomitant]
  6. PANTOPRAZOLE [Suspect]
     Indication: BACK PAIN
     Dates: start: 20090101
  7. ALLOPURINOL [Concomitant]
  8. DICLOFENAC SODIUM [Suspect]
     Indication: BACK PAIN
     Dates: start: 20090101

REACTIONS (8)
  - MUSCULOSKELETAL PAIN [None]
  - PYREXIA [None]
  - PRURITUS GENERALISED [None]
  - CD8 LYMPHOCYTES INCREASED [None]
  - SELF-MEDICATION [None]
  - DERMATITIS EXFOLIATIVE [None]
  - CD4 LYMPHOCYTES DECREASED [None]
  - DRUG HYPERSENSITIVITY [None]
